FAERS Safety Report 6994064-9 (Version None)
Quarter: 2010Q3

REPORT INFORMATION
  Report Type: 
  Country: None (occurrence: None)
  Receive Date: 20100917
  Receipt Date: 20070710
  Transmission Date: 20110219
  Serious: Yes (Hospitalization, Other)
  Sender: FDA-Public Use
  Company Number: US-ASTRAZENECA-2006UW11729

PATIENT
  Age: 380 Month
  Sex: Male
  Weight: 108.9 kg

DRUGS (16)
  1. SEROQUEL [Suspect]
     Indication: DEPRESSION
     Route: 048
     Dates: start: 20050601, end: 20051201
  2. SEROQUEL [Suspect]
     Indication: BIPOLAR DISORDER
     Route: 048
     Dates: start: 20050601, end: 20051201
  3. SEROQUEL [Suspect]
     Indication: AGITATION
     Route: 048
     Dates: start: 20050601, end: 20051201
  4. SEROQUEL [Suspect]
     Indication: PSYCHOTIC DISORDER
     Route: 048
     Dates: start: 20050601, end: 20051201
  5. SEROQUEL [Suspect]
     Dosage: 100-600 MG, FLUCTUATING
     Route: 048
     Dates: start: 20050601
  6. SEROQUEL [Suspect]
     Dosage: 100-600 MG, FLUCTUATING
     Route: 048
     Dates: start: 20050601
  7. SEROQUEL [Suspect]
     Dosage: 100-600 MG, FLUCTUATING
     Route: 048
     Dates: start: 20050601
  8. SEROQUEL [Suspect]
     Dosage: 100-600 MG, FLUCTUATING
     Route: 048
     Dates: start: 20050601
  9. SEROQUEL [Suspect]
     Route: 048
  10. SEROQUEL [Suspect]
     Route: 048
  11. SEROQUEL [Suspect]
     Route: 048
  12. SEROQUEL [Suspect]
     Route: 048
  13. ZYPREXA [Suspect]
     Route: 065
  14. RISPERDAL [Concomitant]
     Dosage: 1-2 MG
     Route: 048
     Dates: start: 20050601
  15. EFFEXOR XR [Concomitant]
     Dosage: 37.5-150 MG
     Route: 048
     Dates: start: 20050614
  16. LIPITOR [Concomitant]
     Dosage: 10-40 MG
     Route: 048
     Dates: start: 20050601

REACTIONS (4)
  - DIABETES MELLITUS INADEQUATE CONTROL [None]
  - DIABETIC COMA [None]
  - PANCREATITIS [None]
  - TYPE 2 DIABETES MELLITUS [None]
